FAERS Safety Report 7177876-0 (Version None)
Quarter: 2010Q4

REPORT INFORMATION
  Report Type: 
  Country: None (occurrence: None)
  Receive Date: 20101220
  Receipt Date: 20101209
  Transmission Date: 20110411
  Serious: Yes (Hospitalization)
  Sender: FDA-Public Use
  Company Number: CH-ASTRAZENECA-2010SE58718

PATIENT
  Age: 27 Year
  Sex: Female

DRUGS (3)
  1. SEROQUEL [Suspect]
     Route: 048
  2. CITALOPRAM [Suspect]
     Route: 048
  3. PRIADEL RETARD [Suspect]
     Route: 048
     Dates: start: 20101110

REACTIONS (1)
  - CONVULSION [None]
